FAERS Safety Report 9562451 (Version 1)
Quarter: 2013Q3

REPORT INFORMATION
  Report Type: Report from Study
  Country: AU (occurrence: AU)
  Receive Date: 20130927
  Receipt Date: 20130927
  Transmission Date: 20140515
  Serious: Yes (Hospitalization)
  Sender: FDA-Public Use
  Company Number: AU-GLAXOSMITHKLINE-B0861509B

PATIENT
  Age: 63 Year
  Sex: Male
  Weight: 72 kg

DRUGS (10)
  1. EVEROLIMUS [Suspect]
     Indication: METASTATIC RENAL CELL CARCINOMA
  2. PAZOPANIB [Suspect]
     Indication: METASTATIC RENAL CELL CARCINOMA
  3. DEXAMETHASONE [Suspect]
  4. QUINAPRIL [Concomitant]
  5. STEMETIL [Concomitant]
  6. METOCLOPRAMIDE [Concomitant]
  7. MEGESTROL [Concomitant]
  8. AMLODIPINE BESILATE + ATORVASTATIN CALCIUM [Concomitant]
  9. AMINO ACIDS [Concomitant]
  10. PARACETAMOL [Concomitant]

REACTIONS (1)
  - Delirium [Not Recovered/Not Resolved]
